FAERS Safety Report 24681863 (Version 1)
Quarter: 2024Q4

REPORT INFORMATION
  Report Type: Report from Study
  Country: US (occurrence: US)
  Receive Date: 20241130
  Receipt Date: 20241130
  Transmission Date: 20250115
  Serious: Yes (Hospitalization, Other)
  Sender: ABBVIE
  Company Number: US-ABBVIE-6016297

PATIENT
  Sex: Female

DRUGS (2)
  1. RESTASIS [Suspect]
     Active Substance: CYCLOSPORINE
     Indication: Dry eye
     Dosage: TWO DROPS IN EACH EYE
     Route: 047
     Dates: start: 202406
  2. RESTASIS [Suspect]
     Active Substance: CYCLOSPORINE
     Dosage: TWO DROPS IN EACH EYE?START DATE : EIGHT TO NINE YEARS AGO
     Route: 047
     Dates: start: 2015

REACTIONS (4)
  - Thrombosis [Unknown]
  - Eye disorder [Unknown]
  - Pain [Recovering/Resolving]
  - Nerve compression [Recovering/Resolving]

NARRATIVE: CASE EVENT DATE: 20240301
